FAERS Safety Report 10781301 (Version 4)
Quarter: 2015Q4

REPORT INFORMATION
  Report Type: Spontaneous
  Country: US (occurrence: US)
  Receive Date: 20150210
  Receipt Date: 20151013
  Transmission Date: 20160304
  Serious: Yes (Hospitalization, Other)
  Sender: FDA-Public Use
  Company Number: US-GLAXOSMITHKLINE-A1074396A

PATIENT

DRUGS (6)
  1. COUMADIN [Concomitant]
     Active Substance: WARFARIN SODIUM
  2. FLOLAN [Suspect]
     Active Substance: EPOPROSTENOL SODIUM
     Dosage: 40.7 NG/KG/MIN (CONCENTRATION 60,000 NG/ML, PUMP RATE 80 ML/DAY, VIAL STRENGTH 1.5 MG/ML), CO
     Route: 042
  3. LETAIRIS [Concomitant]
     Active Substance: AMBRISENTAN
  4. FLOLAN [Suspect]
     Active Substance: EPOPROSTENOL SODIUM
     Dosage: 40.7 NG/KG/MIN
     Route: 042
  5. FLOLAN [Suspect]
     Active Substance: EPOPROSTENOL SODIUM
     Indication: PULMONARY ARTERIAL HYPERTENSION
     Dosage: 40.75 NG/KG/MIN, VIAL STRENGTH 1.5, 60,000 NG/ML CONCENTRATION, PUMP RATE 80 ML/DAY
     Route: 042
     Dates: start: 20010803
  6. FLOLAN [Suspect]
     Active Substance: EPOPROSTENOL SODIUM
     Dosage: 22 NG/KG/MIN (VIAL STRENGTH 1.5 MG/ML), CO
     Route: 042

REACTIONS (5)
  - Hospitalisation [Not Recovered/Not Resolved]
  - Infusion site haemorrhage [Unknown]
  - Staphylococcal infection [Unknown]
  - Device related infection [Unknown]
  - Medical device complication [Unknown]

NARRATIVE: CASE EVENT DATE: 201509
